FAERS Safety Report 14358298 (Version 4)
Quarter: 2020Q4

REPORT INFORMATION
  Report Type: Report from Study
  Country: US (occurrence: US)
  Receive Date: 20180105
  Receipt Date: 20201117
  Transmission Date: 20210113
  Serious: Yes (Other)
  Sender: FDA-Public Use
  Company Number: US-SA-2017SA201920

PATIENT

DRUGS (3)
  1. DUPILUMAB [Suspect]
     Active Substance: DUPILUMAB
     Indication: DERMATITIS ATOPIC
     Dosage: 600 MG, 1X
     Route: 058
     Dates: start: 20170601, end: 20170601
  2. DUPILUMAB [Suspect]
     Active Substance: DUPILUMAB
     Indication: DERMATITIS ATOPIC
     Dosage: 300 MG, QOW
     Route: 058
     Dates: start: 202010
  3. DUPILUMAB [Suspect]
     Active Substance: DUPILUMAB
     Indication: PSORIASIS
     Dosage: 300 MG, QOW
     Route: 058
     Dates: start: 201706, end: 201712

REACTIONS (6)
  - Eczema [Unknown]
  - Therapeutic response decreased [Unknown]
  - Stress [Unknown]
  - Psoriasis [Unknown]
  - Product use in unapproved indication [Unknown]
  - Tuberculosis [Unknown]

NARRATIVE: CASE EVENT DATE: 2017
